FAERS Safety Report 6376465-5 (Version None)
Quarter: 2009Q3

REPORT INFORMATION
  Report Type: 
  Country: None (occurrence: None)
  Receive Date: 20090922
  Receipt Date: 20090922
  Transmission Date: 20100115
  Serious: Yes (Life-Threatening, Other)
  Sender: FDA-Public Use
  Company Number: None

PATIENT
  Age: 37 Year
  Sex: Female
  Weight: 56.6996 kg

DRUGS (1)
  1. AZITHROMYCIN [Suspect]
     Dosage: PO
     Route: 048

REACTIONS (3)
  - ASPHYXIA [None]
  - DYSPNOEA [None]
  - THROAT TIGHTNESS [None]
